FAERS Safety Report 5743139-0 (Version None)
Quarter: 2008Q2

REPORT INFORMATION
  Report Type: 
  Country: None (occurrence: None)
  Receive Date: 20080519
  Receipt Date: 20080514
  Transmission Date: 20081010
  Serious: Yes (Death, Other)
  Sender: FDA-Public Use
  Company Number: US-PURDUE-USA_2007_0031649

PATIENT
  Age: 36 Year
  Sex: Female
  Weight: 125 kg

DRUGS (3)
  1. OXYCONTIN [Suspect]
     Indication: BACK PAIN
     Dosage: 80 MG, BID
     Dates: start: 20000831, end: 20011217
  2. OXYCONTIN [Suspect]
     Dosage: 40 MG, BID
  3. ANALGESICS [Concomitant]
     Indication: PAIN

REACTIONS (1)
  - MULTIPLE DRUG OVERDOSE ACCIDENTAL [None]
